FAERS Safety Report 5157637-4 (Version None)
Quarter: 2006Q4

REPORT INFORMATION
  Report Type: 
  Country: None (occurrence: None)
  Receive Date: 20061127
  Receipt Date: 20061120
  Transmission Date: 20070319
  Serious: Yes (Hospitalization)
  Sender: FDA-Public Use
  Company Number: US-BRISTOL-MYERS SQUIBB COMPANY-13584743

PATIENT
  Age: 69 Year
  Sex: Female

DRUGS (5)
  1. CARBOPLATIN [Suspect]
     Indication: OVARIAN CANCER
     Route: 042
     Dates: start: 20050825, end: 20050825
  2. TLK286 [Suspect]
     Indication: OVARIAN CANCER
     Route: 042
     Dates: start: 20050825, end: 20050825
  3. MAGNESIUM [Concomitant]
     Indication: PROPHYLAXIS
     Route: 048
     Dates: start: 20040901
  4. CALCIUM [Concomitant]
     Indication: PROPHYLAXIS
     Route: 048
     Dates: start: 20040801
  5. VITAMIN CAP [Concomitant]
     Indication: PROPHYLAXIS
     Route: 048
     Dates: start: 20040801

REACTIONS (1)
  - THROMBOCYTOPENIA [None]
